FAERS Safety Report 18737626 (Version 1)
Quarter: 2021Q1

REPORT INFORMATION
  Report Type: Spontaneous
  Country: US (occurrence: US)
  Receive Date: 20210113
  Receipt Date: 20210113
  Transmission Date: 20210419
  Serious: Yes (Other)
  Sender: FDA-Public Use
  Company Number: US-PURDUE-USA-2020-0189750

PATIENT
  Sex: Female

DRUGS (14)
  1. MORPHINE SULFATE EXTENDED?RELEASE TABLETS (RHODES 74?862) [Suspect]
     Active Substance: MORPHINE
     Indication: PRODUCT USED FOR UNKNOWN INDICATION
  2. MS CONTIN [Suspect]
     Active Substance: MORPHINE SULFATE
     Indication: PRODUCT USED FOR UNKNOWN INDICATION
  3. OXYCONTIN [Suspect]
     Active Substance: OXYCODONE HYDROCHLORIDE
     Indication: PRODUCT USED FOR UNKNOWN INDICATION
  4. OXYCODONE HCL CR TABLETS (SIMILAR TO NDA 22?272) [Suspect]
     Active Substance: OXYCODONE HYDROCHLORIDE
     Indication: PRODUCT USED FOR UNKNOWN INDICATION
  5. DILAUDID [Suspect]
     Active Substance: HYDROMORPHONE HYDROCHLORIDE
     Indication: PRODUCT USED FOR UNKNOWN INDICATION
  6. BUPRENORPHINE TRANSDERMAL PATCH (SIMILAR TO NDA 21?306) [Suspect]
     Active Substance: BUPRENORPHINE
     Indication: PRODUCT USED FOR UNKNOWN INDICATION
  7. OXYCODONE HCL TABLETS (RHODES 91?490) [Suspect]
     Active Substance: OXYCODONE HYDROCHLORIDE
     Indication: PRODUCT USED FOR UNKNOWN INDICATION
  8. HYDROMORPHONE HCL ORAL SOLUTION (RHODES) [Suspect]
     Active Substance: HYDROMORPHONE HYDROCHLORIDE
     Indication: PRODUCT USED FOR UNKNOWN INDICATION
  9. OXYCODONE/ ACETAMINOPHEN TABLETS [Suspect]
     Active Substance: ACETAMINOPHEN\OXYCODONE HYDROCHLORIDE
     Indication: PRODUCT USED FOR UNKNOWN INDICATION
  10. HYSINGLA ER [Suspect]
     Active Substance: HYDROCODONE BITARTRATE
     Indication: PRODUCT USED FOR UNKNOWN INDICATION
  11. OXYCODONE HCL TABLETS (RHODES 91?490) [Suspect]
     Active Substance: OXYCODONE HYDROCHLORIDE
     Indication: PRODUCT USED FOR UNKNOWN INDICATION
  12. HYDROCODONE BITARTRATE (SIMILAR TO NDA 206627) [Suspect]
     Active Substance: HYDROCODONE BITARTRATE
     Indication: PRODUCT USED FOR UNKNOWN INDICATION
  13. BUTRANS [Suspect]
     Active Substance: BUPRENORPHINE
     Indication: PRODUCT USED FOR UNKNOWN INDICATION
  14. HYDROCODONE BITARTRATE AND ACETAMINOPHEN [Suspect]
     Active Substance: ACETAMINOPHEN\HYDROCODONE BITARTRATE
     Indication: PRODUCT USED FOR UNKNOWN INDICATION

REACTIONS (3)
  - Drug withdrawal syndrome neonatal [Unknown]
  - Foetal exposure during pregnancy [Recovered/Resolved]
  - Drug dependence [Unknown]
